FAERS Safety Report 6449719-1 (Version None)
Quarter: 2009Q4

REPORT INFORMATION
  Report Type: 
  Country: None (occurrence: None)
  Receive Date: 20091120
  Receipt Date: 20091105
  Transmission Date: 20100525
  Serious: Yes (Hospitalization)
  Sender: FDA-Public Use
  Company Number: AU-GENENTECH-264021

PATIENT
  Sex: Female

DRUGS (3)
  1. BEVACIZUMAB [Suspect]
     Indication: BREAST CANCER
     Dosage: 780 MG, Q3W
     Route: 042
     Dates: start: 20080509
  2. DOXORUBICIN HCL [Suspect]
     Indication: BREAST CANCER
     Dosage: 115 MG, Q3W
     Route: 042
     Dates: start: 20080509
  3. CYCLOPHOSPHAMIDE [Suspect]
     Indication: BREAST CANCER
     Dosage: 1110 MG, Q3W
     Route: 042
     Dates: start: 20080509

REACTIONS (1)
  - ANAL FISSURE [None]
